FAERS Safety Report 8178975-7 (Version None)
Quarter: 2012Q1

REPORT INFORMATION
  Report Type: 
  Country: None (occurrence: None)
  Receive Date: 20120302
  Receipt Date: 20120227
  Transmission Date: 20120608
  Serious: No
  Sender: FDA-Public Use
  Company Number: US-BIOGENIDEC-2012BI007193

PATIENT
  Age: 44 Year
  Sex: Male

DRUGS (2)
  1. TYSABRI [Suspect]
     Indication: MULTIPLE SCLEROSIS
     Route: 042
     Dates: start: 20080723, end: 20100609
  2. TYSABRI [Suspect]
     Route: 042
     Dates: start: 20110517

REACTIONS (3)
  - FALL [None]
  - UPPER LIMB FRACTURE [None]
  - BALANCE DISORDER [None]
